FAERS Safety Report 7961666-2 (Version None)
Quarter: 2011Q4

REPORT INFORMATION
  Report Type: 
  Country: None (occurrence: None)
  Receive Date: 20111207
  Receipt Date: 20111201
  Transmission Date: 20120403
  Serious: Yes (Hospitalization)
  Sender: FDA-Public Use
  Company Number: GB-PFIZER INC-2011247545

PATIENT
  Age: 1 Year
  Sex: Male
  Weight: 8.4 kg

DRUGS (5)
  1. VFEND [Suspect]
     Indication: ACUTE MYELOID LEUKAEMIA
     Dosage: 100 MG, 2X/DAY
     Route: 048
     Dates: start: 20110524, end: 20110712
  2. CODEINE PHOSPHATE [Concomitant]
     Indication: PAIN
     Dosage: 7.5 MG, 4X/DAY, AS NEEDED
     Route: 048
     Dates: start: 20110425
  3. COTRIM [Concomitant]
     Indication: PROPHYLAXIS
     Dosage: 240 MG, 2X/DAY
     Route: 048
     Dates: start: 20110428
  4. CHLORHEXIDINE [Concomitant]
     Indication: PROPHYLAXIS
     Dosage: 5 ML, 2X/DAY
     Route: 048
     Dates: start: 20110601
  5. VFEND [Suspect]
     Indication: ANTIFUNGAL PROPHYLAXIS

REACTIONS (6)
  - ERYTHEMA [None]
  - SKIN REACTION [None]
  - RASH [None]
  - SKIN DISORDER [None]
  - PHOTOSENSITIVITY REACTION [None]
  - DECUBITUS ULCER [None]
